FAERS Safety Report 17196858 (Version 1)
Quarter: 2019Q4

REPORT INFORMATION
  Report Type: Spontaneous
  Country: DK (occurrence: DK)
  Receive Date: 20191224
  Receipt Date: 20191224
  Transmission Date: 20200122
  Serious: Yes (Hospitalization, Other)
  Sender: FDA-Public Use
  Company Number: DK-OTSUKA-2019_042236

PATIENT
  Sex: Male

DRUGS (1)
  1. ABILIFY MAINTENA [Suspect]
     Active Substance: ARIPIPRAZOLE
     Indication: PRODUCT USED FOR UNKNOWN INDICATION
     Dosage: 400 MG, UNK (EVERY 14 DAYS)
     Route: 065

REACTIONS (9)
  - Pneumothorax [Unknown]
  - Acute kidney injury [Unknown]
  - Cardiac disorder [Unknown]
  - Inappropriate schedule of product administration [Unknown]
  - Inflammation [Unknown]
  - Type 2 diabetes mellitus [Unknown]
  - Musculoskeletal stiffness [Unknown]
  - Metabolic disorder [Unknown]
  - Bacterial infection [Unknown]
